FAERS Safety Report 18151913 (Version 1)
Quarter: 2020Q3

REPORT INFORMATION
  Report Type: Spontaneous
  Country: US (occurrence: US)
  Receive Date: 20200814
  Receipt Date: 20200814
  Transmission Date: 20201103
  Serious: Yes (Disabling, Other)
  Sender: FDA-Public Use
  Company Number: US-PURDUE-USA-2020-0161208

PATIENT
  Sex: Female

DRUGS (1)
  1. OXYCODONE HYDROCHLORIDE (SIMILAR TO NDA 22?272) [Suspect]
     Active Substance: OXYCODONE HYDROCHLORIDE
     Indication: DYSMENORRHOEA
     Dosage: UNK
     Route: 048

REACTIONS (8)
  - Decreased appetite [Unknown]
  - Imprisonment [Unknown]
  - Withdrawal syndrome [Unknown]
  - Suicide attempt [Unknown]
  - Drug dependence [Unknown]
  - Vomiting [Unknown]
  - Unevaluable event [Unknown]
  - Weight decreased [Unknown]
